FAERS Safety Report 4283230-1 (Version None)
Quarter: 2004Q1

REPORT INFORMATION
  Report Type: 
  Country: None (occurrence: None)
  Receive Date: 20040129
  Receipt Date: 20040120
  Transmission Date: 20041129
  Serious: Yes (Hospitalization)
  Sender: FDA-Public Use
  Company Number: NO-JNJFOC-20040103758

PATIENT
  Age: 71 Year
  Sex: Female

DRUGS (5)
  1. RISPERDAL CONSTA [Suspect]
     Indication: SCHIZOPHRENIA
     Dosage: 37.5 MG, 1 IN 14 DAY, INTRA-MUSCULAR
     Route: 030
     Dates: start: 20030401, end: 20031101
  2. FUROSEMIDE (TABLETS) FUROSEMIDE [Concomitant]
  3. ACETYLSALICYLIC ACID (TABLETS) ACETYLSALICYLIC ACID [Concomitant]
  4. DIGITOXINE (DIGITOXIN) TABLETS [Concomitant]
  5. KALEORID (POTASSIUM CHLORIDE) TABLETS [Concomitant]

REACTIONS (3)
  - DRUG LEVEL INCREASED [None]
  - DYSPNOEA [None]
  - FATIGUE [None]
